FAERS Safety Report 13381256 (Version 1)
Quarter: 2017Q1

REPORT INFORMATION
  Report Type: Spontaneous
  Country: IN (occurrence: IN)
  Receive Date: 20170329
  Receipt Date: 20170329
  Transmission Date: 20170429
  Serious: Yes (Other)
  Sender: FDA-Public Use
  Company Number: IN-SUN PHARMACEUTICAL INDUSTRIES LTD-2017R1-137001

PATIENT
  Age: 52 Year
  Sex: Male
  Weight: 60 kg

DRUGS (9)
  1. ATRACURIUM [Concomitant]
     Active Substance: ATRACURIUM
     Indication: ENDOTRACHEAL INTUBATION
     Dosage: UNK
     Route: 065
  2. ISOFLURANE. [Concomitant]
     Active Substance: ISOFLURANE
     Indication: MAINTENANCE OF ANAESTHESIA
     Route: 065
  3. FENTANYL. [Concomitant]
     Active Substance: FENTANYL
     Indication: PREMEDICATION
     Dosage: UNK
     Route: 065
  4. AMLODIPINE [Suspect]
     Active Substance: AMLODIPINE BESYLATE
     Indication: HYPERTENSION
     Dosage: THERAPEUTIC DOSE
     Route: 065
  5. ATRACURIUM [Concomitant]
     Active Substance: ATRACURIUM
     Indication: MAINTENANCE OF ANAESTHESIA
     Dosage: UNK
     Route: 065
  6. GLYCOPYROLATE [Concomitant]
     Active Substance: GLYCOPYRROLATE
     Indication: PREMEDICATION
     Dosage: UNK
     Route: 065
  7. OXYGEN. [Concomitant]
     Active Substance: OXYGEN
     Indication: MAINTENANCE OF ANAESTHESIA
     Route: 065
  8. THIOPENTAL [Concomitant]
     Active Substance: THIOPENTAL
     Indication: GENERAL ANAESTHESIA
     Dosage: UNK
     Route: 065
  9. NITROUS OXIDE. [Concomitant]
     Active Substance: NITROUS OXIDE
     Indication: MAINTENANCE OF ANAESTHESIA
     Route: 065

REACTIONS (1)
  - Procedural hypotension [Recovered/Resolved]
